FAERS Safety Report 5798526-1 (Version None)
Quarter: 2008Q3

REPORT INFORMATION
  Report Type: 
  Country: None (occurrence: None)
  Receive Date: 20080702
  Receipt Date: 20080624
  Transmission Date: 20090109
  Serious: Yes (Life-Threatening, Hospitalization)
  Sender: FDA-Public Use
  Company Number: JP-MERCK-0806USA01882

PATIENT
  Age: 56 Year
  Sex: Male

DRUGS (4)
  1. ZETIA [Suspect]
     Indication: HYPERLIPIDAEMIA
     Route: 048
     Dates: start: 20071222, end: 20080501
  2. PIOGLITAZONE HYDROCHLORIDE [Concomitant]
     Route: 065
     Dates: start: 20071027, end: 20071221
  3. PIOGLITAZONE HYDROCHLORIDE [Concomitant]
     Route: 065
     Dates: start: 20071222
  4. BEZAFIBRATE [Concomitant]
     Route: 065
     Dates: start: 20070526

REACTIONS (3)
  - APLASTIC ANAEMIA [None]
  - HAEMORRHAGE SUBCUTANEOUS [None]
  - PANCYTOPENIA [None]
